FAERS Safety Report 19572232 (Version 1)
Quarter: 2021Q3

REPORT INFORMATION
  Report Type: Spontaneous
  Country: US (occurrence: US)
  Receive Date: 20210716
  Receipt Date: 20210716
  Transmission Date: 20211014
  Serious: No
  Sender: FDA-Public Use
  Company Number: US-CELGENEUS-USA-20210702018

PATIENT
  Sex: Female
  Weight: 71.73 kg

DRUGS (5)
  1. POMALYST [Suspect]
     Active Substance: POMALIDOMIDE
     Dosage: 10?25 MG
     Route: 048
     Dates: start: 201807
  2. POMALYST [Suspect]
     Active Substance: POMALIDOMIDE
     Dosage: 3?1 MG
     Route: 048
     Dates: start: 202002
  3. POMALYST [Suspect]
     Active Substance: POMALIDOMIDE
     Dosage: 3 MILLIGRAM
     Route: 048
     Dates: start: 202103
  4. POMALYST [Suspect]
     Active Substance: POMALIDOMIDE
     Dosage: 2 MILLIGRAM
     Route: 048
     Dates: start: 202002
  5. POMALYST [Suspect]
     Active Substance: POMALIDOMIDE
     Indication: PLASMA CELL MYELOMA
     Dosage: 25 MILLIGRAM
     Route: 048
     Dates: start: 201710

REACTIONS (4)
  - Fall [Unknown]
  - Concussion [Unknown]
  - Muscle spasms [Unknown]
  - Laboratory test abnormal [Unknown]
